FAERS Safety Report 16532283 (Version 1)
Quarter: 2019Q3

REPORT INFORMATION
  Report Type: Spontaneous
  Country: SE (occurrence: SE)
  Receive Date: 20190704
  Receipt Date: 20190704
  Transmission Date: 20191004
  Serious: Yes (Life-Threatening, Other)
  Sender: FDA-Public Use
  Company Number: SE-MACLEODS PHARMACEUTICALS US LTD-MAC2019021918

PATIENT

DRUGS (3)
  1. ZOPICLONE [Concomitant]
     Active Substance: ZOPICLONE
     Indication: PRODUCT USED FOR UNKNOWN INDICATION
     Route: 065
  2. METHYLPHENIDATE. [Concomitant]
     Active Substance: METHYLPHENIDATE
     Indication: PRODUCT USED FOR UNKNOWN INDICATION
     Dosage: UNK,UNKNOWN AMOUNTS
     Route: 065
  3. QUETIAPINE 200MG TABLET ER [Suspect]
     Active Substance: QUETIAPINE
     Indication: PRODUCT USED FOR UNKNOWN INDICATION
     Dosage: 90 DOSAGE FORM,SLOW RELEASE TABLET, 18 G (90 TABLETS X 200 MG)
     Route: 048

REACTIONS (7)
  - Pneumonia aspiration [Unknown]
  - Intentional overdose [Unknown]
  - Bezoar [Unknown]
  - Depressed level of consciousness [Unknown]
  - Muscle twitching [Unknown]
  - Nystagmus [Unknown]
  - Tachycardia [Unknown]
